FAERS Safety Report 18305031 (Version 1)
Quarter: 2020Q3

REPORT INFORMATION
  Report Type: Report from Study
  Country: CA (occurrence: CA)
  Receive Date: 20200923
  Receipt Date: 20200923
  Transmission Date: 20201103
  Serious: Yes (Life-Threatening)
  Sender: FDA-Public Use
  Company Number: CA-MYLANLABS-2020M1080942

PATIENT
  Sex: Female

DRUGS (1)
  1. EPIPEN [Suspect]
     Active Substance: EPINEPHRINE
     Indication: ANAPHYLACTIC REACTION
     Dosage: UNK
     Dates: start: 20200909

REACTIONS (4)
  - Needle issue [Unknown]
  - Wrong technique in product usage process [Unknown]
  - Device failure [Unknown]
  - Prescription drug used without a prescription [Unknown]

NARRATIVE: CASE EVENT DATE: 20200909
